FAERS Safety Report 10198923 (Version 1)
Quarter: 2014Q2

REPORT INFORMATION
  Report Type: Spontaneous
  Country: CH (occurrence: CH)
  Receive Date: 20140527
  Receipt Date: 20140527
  Transmission Date: 20141212
  Serious: Yes (Other)
  Sender: FDA-Public Use
  Company Number: CH-ELI_LILLY_AND_COMPANY-CH201405007322

PATIENT
  Sex: Female

DRUGS (2)
  1. FLUCTINE [Suspect]
     Indication: OBSESSIVE-COMPULSIVE DISORDER
     Dosage: 40 MG, QD
     Route: 064
  2. FLUCTINE [Suspect]
     Indication: OBSESSIVE-COMPULSIVE DISORDER
     Dosage: 40 MG, QD
     Route: 064

REACTIONS (2)
  - Exposure during pregnancy [Unknown]
  - Pupils unequal [Not Recovered/Not Resolved]
